FAERS Safety Report 5904326-1 (Version None)
Quarter: 2008Q3

REPORT INFORMATION
  Report Type: 
  Country: None (occurrence: None)
  Receive Date: 20080930
  Receipt Date: 20080930
  Transmission Date: 20090109
  Serious: No
  Sender: FDA-Public Use
  Company Number: None

PATIENT
  Sex: Male
  Weight: 72.5755 kg

DRUGS (1)
  1. GEODON [Suspect]
     Indication: BIPOLAR DISORDER
     Dosage: 300 MG TWICE DAILY PO
     Route: 048
     Dates: start: 20080917, end: 20080920

REACTIONS (13)
  - ANHEDONIA [None]
  - BRUXISM [None]
  - BURNING SENSATION [None]
  - DISORIENTATION [None]
  - DYSKINESIA [None]
  - FATIGUE [None]
  - GRIMACING [None]
  - INSOMNIA [None]
  - MANIA [None]
  - MUSCLE DISORDER [None]
  - MUSCLE RIGIDITY [None]
  - SENSORY LOSS [None]
  - SWOLLEN TONGUE [None]
